FAERS Safety Report 11647314 (Version 6)
Quarter: 2016Q3

REPORT INFORMATION
  Report Type: Report from Study
  Country: CA (occurrence: CA)
  Receive Date: 20151021
  Receipt Date: 20160810
  Transmission Date: 20161109
  Serious: Yes (Death, Hospitalization, Other)
  Sender: FDA-Public Use
  Company Number: CA-ROCHE-1600695

PATIENT
  Age: 81 Year
  Sex: Male

DRUGS (16)
  1. ESBRIET [Suspect]
     Active Substance: PIRFENIDONE
     Route: 048
     Dates: start: 20150725
  2. ESBRIET [Suspect]
     Active Substance: PIRFENIDONE
     Route: 048
     Dates: start: 20151008
  3. ESBRIET [Suspect]
     Active Substance: PIRFENIDONE
     Route: 048
  4. TAMSULOSIN [Concomitant]
     Active Substance: TAMSULOSIN
     Route: 065
  5. ESBRIET [Suspect]
     Active Substance: PIRFENIDONE
     Route: 048
     Dates: start: 20150613
  6. ESBRIET [Suspect]
     Active Substance: PIRFENIDONE
     Dosage: 267MG-267MG-534MG.
     Route: 048
     Dates: start: 20150626
  7. ESBRIET [Suspect]
     Active Substance: PIRFENIDONE
     Route: 048
  8. FINASTERIDE. [Concomitant]
     Active Substance: FINASTERIDE
     Route: 065
  9. FUROSEMIDE. [Concomitant]
     Active Substance: FUROSEMIDE
     Route: 065
  10. ESBRIET [Suspect]
     Active Substance: PIRFENIDONE
     Indication: IDIOPATHIC PULMONARY FIBROSIS
     Route: 048
     Dates: start: 20150606
  11. APIXABAN [Concomitant]
     Active Substance: APIXABAN
     Route: 065
  12. PANTOPRAZOLE [Concomitant]
     Active Substance: PANTOPRAZOLE SODIUM
     Route: 065
  13. METFORMIN [Concomitant]
     Active Substance: METFORMIN HYDROCHLORIDE
     Route: 065
  14. LOSARTAN. [Concomitant]
     Active Substance: LOSARTAN
     Route: 065
  15. ESBRIET [Suspect]
     Active Substance: PIRFENIDONE
     Dosage: 267MG-267MG-534MG
     Route: 048
     Dates: start: 20151006
  16. ROSUVASTATIN. [Concomitant]
     Active Substance: ROSUVASTATIN
     Route: 065

REACTIONS (10)
  - Dizziness [Not Recovered/Not Resolved]
  - Dyspnoea [Unknown]
  - Death [Fatal]
  - Abdominal discomfort [Recovered/Resolved]
  - Dyspnoea exertional [Not Recovered/Not Resolved]
  - Peripheral swelling [Unknown]
  - Weight decreased [Unknown]
  - Pulmonary function test abnormal [Unknown]
  - Fluid retention [Not Recovered/Not Resolved]
  - Fatigue [Not Recovered/Not Resolved]

NARRATIVE: CASE EVENT DATE: 20150613
